FAERS Safety Report 25907537 (Version 1)
Quarter: 2025Q4

REPORT INFORMATION
  Report Type: Spontaneous
  Country: JP (occurrence: JP)
  Receive Date: 20251010
  Receipt Date: 20251010
  Transmission Date: 20260118
  Serious: Yes (Death, Other)
  Sender: RANBAXY
  Company Number: JP-SUN PHARMACEUTICAL INDUSTRIES LTD-2025RR-529470

PATIENT
  Age: 56 Year
  Sex: Female

DRUGS (2)
  1. IMATINIB [Suspect]
     Active Substance: IMATINIB
     Indication: Gastric cancer
     Dosage: 100 MILLIGRAM, DAILY, 100 MG/DAY
     Route: 065
  2. IMATINIB [Suspect]
     Active Substance: IMATINIB
     Indication: Pulmonary tumour thrombotic microangiopathy

REACTIONS (3)
  - Thrombocytopenia [Fatal]
  - Drug ineffective [Fatal]
  - Disease progression [Fatal]
